FAERS Safety Report 8063831-5 (Version None)
Quarter: 2012Q1

REPORT INFORMATION
  Report Type: 
  Country: None (occurrence: None)
  Receive Date: 20120123
  Receipt Date: 20120109
  Transmission Date: 20120608
  Serious: Yes (Death)
  Sender: FDA-Public Use
  Company Number: US-MERCK-1201USA02207

PATIENT
  Age: 65 Year
  Sex: Male

DRUGS (5)
  1. PRINIVIL [Suspect]
     Route: 048
  2. PAROXETINE [Suspect]
     Route: 048
  3. AMLODIPINE [Suspect]
     Route: 048
  4. ATENOLOL [Suspect]
     Route: 048
  5. ATORVASTATIN [Suspect]
     Route: 048

REACTIONS (2)
  - OVERDOSE [None]
  - COMPLETED SUICIDE [None]
